FAERS Safety Report 7167126-3 (Version None)
Quarter: 2010Q4

REPORT INFORMATION
  Report Type: 
  Country: None (occurrence: None)
  Receive Date: 20101216
  Receipt Date: 20101202
  Transmission Date: 20110411
  Serious: Yes (Hospitalization, Other)
  Sender: FDA-Public Use
  Company Number: US-ELI_LILLY_AND_COMPANY-US200805003020

PATIENT
  Age: 56 Year
  Sex: Female

DRUGS (10)
  1. CYMBALTA [Suspect]
     Indication: FIBROMYALGIA
     Dosage: 30 MG, DAILY (1/D)
  2. CYMBALTA [Suspect]
     Dosage: 60 MG, DAILY (1/D)
  3. CYMBALTA [Suspect]
     Dosage: 90 MG, DAILY (1/D)
  4. CYMBALTA [Suspect]
     Dosage: 120 MG, DAILY (1/D)
  5. ANTIDEPRESSANTS [Concomitant]
  6. PLAQUENIL [Concomitant]
     Dosage: 400 MG, UNK
  7. SYNTHROID [Concomitant]
  8. FLEXERIL [Concomitant]
     Dosage: 10 MG, UNK
  9. PILOCARPINE [Concomitant]
     Dosage: 5 MG, UNK
  10. NEXIUM [Concomitant]

REACTIONS (19)
  - CHILLS [None]
  - DRUG INEFFECTIVE [None]
  - DRY EYE [None]
  - DRY MOUTH [None]
  - FEELING ABNORMAL [None]
  - FEELING OF BODY TEMPERATURE CHANGE [None]
  - GALLBLADDER OPERATION [None]
  - GASTROINTESTINAL DISORDER [None]
  - HEART RATE INCREASED [None]
  - HOT FLUSH [None]
  - HYPERHIDROSIS [None]
  - MEDICATION ERROR [None]
  - MENSTRUATION IRREGULAR [None]
  - NIGHTMARE [None]
  - PROCEDURAL COMPLICATION [None]
  - SJOGREN'S SYNDROME [None]
  - VOMITING [None]
  - WEIGHT DECREASED [None]
  - WITHDRAWAL SYNDROME [None]
